FAERS Safety Report 19823507 (Version 1)
Quarter: 2021Q3

REPORT INFORMATION
  Report Type: Spontaneous
  Country: DE (occurrence: DE)
  Receive Date: 20210913
  Receipt Date: 20210913
  Transmission Date: 20211014
  Serious: Yes (Hospitalization, Other)
  Sender: FDA-Public Use
  Company Number: DE-TEVA-2021-DE-1951465

PATIENT
  Age: 83 Year
  Sex: Male
  Weight: 81 kg

DRUGS (6)
  1. TORASEMID [Suspect]
     Active Substance: TORSEMIDE
     Dosage: 10 MILLIGRAM DAILY;  1?0?0?0
     Route: 048
  2. EISEN(II)?KOMPLEX [Concomitant]
     Dosage: 100 MILLIGRAM DAILY; 0?0?1?0
     Route: 048
  3. PHENPROCOUMON [Suspect]
     Active Substance: PHENPROCOUMON
     Dosage: 3 MG, ACCORDING TO INR , ADDITIONAL INFO : MEDICATION ERRORS
     Route: 048
  4. MIRTAZAPIN [Concomitant]
     Active Substance: MIRTAZAPINE
     Dosage: 7.5 MILLIGRAM DAILY; 15 MG, 0?0?0.5?0
     Route: 048
  5. BISOPROLOL [Concomitant]
     Active Substance: BISOPROLOL
     Dosage: 5 MILLIGRAM DAILY; 5 MG, 0.5?0?0.5?0
     Route: 048
  6. ATORVASTATIN [Concomitant]
     Active Substance: ATORVASTATIN
     Dosage: 40 MILLIGRAM DAILY;  0?0?1?0
     Route: 048

REACTIONS (7)
  - Ventricular arrhythmia [Unknown]
  - Disturbance in attention [Unknown]
  - Tachycardia [Unknown]
  - General physical health deterioration [Unknown]
  - International normalised ratio abnormal [Unknown]
  - Dyspnoea [Unknown]
  - Product monitoring error [Unknown]
